FAERS Safety Report 5767076-0 (Version None)
Quarter: 2008Q2

REPORT INFORMATION
  Report Type: 
  Country: None (occurrence: None)
  Receive Date: 20080606
  Receipt Date: 20080528
  Transmission Date: 20081010
  Serious: Yes (Hospitalization)
  Sender: FDA-Public Use
  Company Number: 2008-01888

PATIENT
  Age: 78 Year
  Sex: Male
  Weight: 70 kg

DRUGS (7)
  1. VELCADE [Suspect]
     Indication: MULTIPLE MYELOMA
     Dosage: 2.38 MG, INTRAVENOUS
     Route: 042
     Dates: start: 20080502, end: 20080502
  2. THALIDOMIDE [Suspect]
     Indication: MULTIPLE MYELOMA
     Dosage: 100 MG, ORAL
     Route: 048
     Dates: start: 20080502, end: 20080505
  3. MELPHALAN(MELPHALAN) VIAL [Suspect]
     Indication: MULTIPLE MYELOMA
     Dosage: 16 MG, ORAL
     Route: 048
     Dates: start: 20080502, end: 20080505
  4. PREDNISONE TAB [Suspect]
     Indication: MULTIPLE MYELOMA
  5. DANAZOL [Concomitant]
  6. STEROIDS [Concomitant]
  7. INSULIN (INSULIN) [Concomitant]

REACTIONS (6)
  - DYSURIA [None]
  - HAEMATURIA [None]
  - LUNG DISORDER [None]
  - PALLOR [None]
  - PYREXIA [None]
  - SOPOR [None]
